FAERS Safety Report 15118918 (Version 2)
Quarter: 2018Q3

REPORT INFORMATION
  Report Type: Report from Study
  Country: US (occurrence: US)
  Receive Date: 20180709
  Receipt Date: 20180802
  Transmission Date: 20181010
  Serious: No
  Sender: FDA-Public Use
  Company Number: US-ELI_LILLY_AND_COMPANY-US201807003146

PATIENT
  Sex: Female

DRUGS (1)
  1. TERIPARATIDE [Suspect]
     Active Substance: TERIPARATIDE
     Indication: PRODUCT USED FOR UNKNOWN INDICATION
     Dosage: UNK, UNKNOWN
     Route: 065
     Dates: start: 20180704, end: 20180706

REACTIONS (9)
  - Headache [Unknown]
  - Dizziness [Not Recovered/Not Resolved]
  - Muscle spasms [Unknown]
  - Overdose [Unknown]
  - Omphalitis [Recovering/Resolving]
  - Contusion [Not Recovered/Not Resolved]
  - Injection site erythema [Unknown]
  - Injection site bruising [Unknown]
  - Injection site discomfort [Unknown]
